FAERS Safety Report 11587768 (Version 7)
Quarter: 2016Q2

REPORT INFORMATION
  Report Type: Report from Study
  Country: ZA (occurrence: ZA)
  Receive Date: 20151001
  Receipt Date: 20160502
  Transmission Date: 20160815
  Serious: Yes (Death, Hospitalization, Other)
  Sender: FDA-Public Use
  Company Number: ZA-ABBVIE-15K-143-1469145-00

PATIENT
  Age: 82 Year
  Sex: Male

DRUGS (12)
  1. PANTOCID [Concomitant]
     Indication: PRODUCT USED FOR UNKNOWN INDICATION
     Dosage: 1 OR 2 DAILY
  2. NEUROBION [Concomitant]
     Active Substance: CYANOCOBALAMIN\PYRIDOXINE\THIAMINE
     Indication: PRODUCT USED FOR UNKNOWN INDICATION
     Dosage: 1 DAILY
  3. PLENISH-K [Concomitant]
     Indication: PRODUCT USED FOR UNKNOWN INDICATION
     Dosage: 1 DAILY
  4. CELEBREX [Concomitant]
     Active Substance: CELECOXIB
     Indication: PRODUCT USED FOR UNKNOWN INDICATION
  5. RIDAQ [Concomitant]
     Active Substance: HYDROCHLOROTHIAZIDE
     Indication: PRODUCT USED FOR UNKNOWN INDICATION
     Dosage: HALF A TABLET AT NIGHT
  6. FOLIC ACID. [Concomitant]
     Active Substance: FOLIC ACID
     Indication: PRODUCT USED FOR UNKNOWN INDICATION
  7. METHOTREXATE [Suspect]
     Active Substance: METHOTREXATE
     Indication: PRODUCT USED FOR UNKNOWN INDICATION
     Route: 065
     Dates: end: 201509
  8. ZUVAMOR [Concomitant]
     Active Substance: ROSUVASTATIN
     Indication: PRODUCT USED FOR UNKNOWN INDICATION
  9. ZOPIVANE [Concomitant]
     Indication: PRODUCT USED FOR UNKNOWN INDICATION
     Dosage: 1 AT NIGHT
  10. REMINYL [Concomitant]
     Active Substance: GALANTAMINE
     Indication: PRODUCT USED FOR UNKNOWN INDICATION
  11. HUMIRA [Suspect]
     Active Substance: ADALIMUMAB
     Indication: ANKYLOSING SPONDYLITIS
     Route: 058
     Dates: start: 200707, end: 201509
  12. PHARMAPRESS [Concomitant]
     Indication: PRODUCT USED FOR UNKNOWN INDICATION
     Dosage: 10 MG AT NIGHT

REACTIONS (30)
  - Macrocytosis [Unknown]
  - Varicose veins sublingual [Unknown]
  - Bleeding varicose vein [Unknown]
  - Immune system disorder [Unknown]
  - Atrial fibrillation [Unknown]
  - Osteoarthritis [Unknown]
  - Lung disorder [Unknown]
  - Depression [Unknown]
  - Anaemia [Unknown]
  - Aortic elongation [Unknown]
  - Blood pressure decreased [Unknown]
  - Asthenia [Unknown]
  - Cardiomegaly [Unknown]
  - Aortic calcification [Unknown]
  - Exostosis [Unknown]
  - Pain [Unknown]
  - Myelodysplastic syndrome [Unknown]
  - Cerebrovascular accident [Fatal]
  - Memory impairment [Not Recovered/Not Resolved]
  - Osteosclerosis [Unknown]
  - Toxicity to various agents [Unknown]
  - Exercise tolerance decreased [Unknown]
  - Restless legs syndrome [Unknown]
  - Haemochromatosis [Unknown]
  - Bone marrow failure [Unknown]
  - Feeling abnormal [Unknown]
  - Hypertension [Unknown]
  - Drug effect decreased [Unknown]
  - Pneumonia viral [Recovered/Resolved]
  - Haemoptysis [Not Recovered/Not Resolved]

NARRATIVE: CASE EVENT DATE: 201501
